FAERS Safety Report 23745972 (Version 2)
Quarter: 2024Q2

REPORT INFORMATION
  Report Type: Other
  Country: US (occurrence: None)
  Receive Date: 20240416
  Receipt Date: 20240507
  Transmission Date: 20240716
  Serious: Yes (Other)
  Sender: FDA-Public Use
  Company Number: US-ROCHE-3531127

PATIENT
  Age: 57 Year
  Sex: Female
  Weight: 81.72 kg

DRUGS (3)
  1. OCREVUS [Suspect]
     Active Substance: OCRELIZUMAB
     Indication: Relapsing multiple sclerosis
     Route: 042
     Dates: start: 20230607, end: 20230607
  2. OCREVUS [Suspect]
     Active Substance: OCRELIZUMAB
     Dosage: GIVEN 2 WEEKS APART
     Route: 042
     Dates: start: 202306
  3. OCREVUS [Suspect]
     Active Substance: OCRELIZUMAB
     Route: 042

REACTIONS (7)
  - Hypoaesthesia [Recovered/Resolved]
  - Hemiparesis [Unknown]
  - Paralysis [Recovered/Resolved]
  - Fall [Unknown]
  - Head injury [Unknown]
  - Contusion [Unknown]
  - Pain [Unknown]

NARRATIVE: CASE EVENT DATE: 20230601
